FAERS Safety Report 5636596-1 (Version None)
Quarter: 2008Q1

REPORT INFORMATION
  Report Type: 
  Country: None (occurrence: None)
  Receive Date: 20080225
  Receipt Date: 20080218
  Transmission Date: 20080703
  Serious: Yes (Death)
  Sender: FDA-Public Use
  Company Number: PHBS2007BR21106

PATIENT
  Age: 33 Year
  Sex: Male

DRUGS (12)
  1. LEPONEX [Suspect]
     Indication: ANXIETY
     Dosage: 1 DF, ONCE/SINGLE
     Route: 048
     Dates: start: 20071215
  2. COCAINE [Suspect]
  3. MARIHUANA [Concomitant]
  4. CRACK [Concomitant]
  5. BENZODIAZEPINES [Concomitant]
  6. DIAZEPAM [Concomitant]
     Dosage: 3 DF, UNK
     Route: 048
     Dates: start: 20071215
  7. TOPAMAX [Concomitant]
     Dosage: 2 DF, UNK
     Route: 048
     Dates: start: 20071215
  8. CAPOTEN [Concomitant]
     Dosage: 1 DF, UNK
     Dates: start: 20071215
  9. FENERGAN [Suspect]
     Indication: ANXIETY
     Dosage: 2 DF, UNK
     Dates: start: 20071215
  10. HALDOL [Suspect]
     Indication: ANXIETY
     Dosage: 3 DF, UNK
     Dates: start: 20071215
  11. MIDAZOLAM HCL [Suspect]
     Indication: ANXIETY
  12. ALPRAZOLAM [Suspect]
     Indication: ANXIETY

REACTIONS (5)
  - AGITATION [None]
  - CARDIO-RESPIRATORY ARREST [None]
  - DYSPNOEA [None]
  - HAEMORRHAGE [None]
  - SKIN DISCOLOURATION [None]
